FAERS Safety Report 4480801-4 (Version None)
Quarter: 2004Q4

REPORT INFORMATION
  Report Type: 
  Country: None (occurrence: None)
  Receive Date: 20041021
  Receipt Date: 20041011
  Transmission Date: 20050328
  Serious: Yes (Hospitalization)
  Sender: FDA-Public Use
  Company Number: US-BRISTOL-MYERS SQUIBB COMPANY-12727392

PATIENT
  Age: 78 Year
  Sex: Male

DRUGS (3)
  1. DIDANOSINE [Suspect]
     Indication: HIV INFECTION
     Dates: start: 20020101, end: 20020201
  2. ZIDOVUDINE [Suspect]
     Indication: HIV INFECTION
     Dates: start: 20020101, end: 20020201
  3. INDINAVIR [Suspect]
     Indication: HIV INFECTION
     Dates: start: 20020101, end: 20020201

REACTIONS (2)
  - CARDIAC FAILURE CONGESTIVE [None]
  - VENTRICULAR DYSFUNCTION [None]
